FAERS Safety Report 8394974-4 (Version None)
Quarter: 2012Q2

REPORT INFORMATION
  Report Type: 
  Country: None (occurrence: None)
  Receive Date: 20120530
  Receipt Date: 20120224
  Transmission Date: 20120825
  Serious: No
  Sender: FDA-Public Use
  Company Number: US-GLAXOSMITHKLINE-A0967680A

PATIENT
  Age: 55 Year
  Sex: Male

DRUGS (2)
  1. FLOLAN [Suspect]
     Indication: HEPATIC CIRRHOSIS
     Dosage: 12.5NGKM SEE DOSAGE TEXT
     Route: 042
     Dates: start: 20101013
  2. REVATIO [Concomitant]
     Dosage: 20MG THREE TIMES PER DAY

REACTIONS (1)
  - HYPERHIDROSIS [None]
